FAERS Safety Report 23330244 (Version 2)
Quarter: 2023Q4

REPORT INFORMATION
  Report Type: Spontaneous
  Country: DE (occurrence: DE)
  Receive Date: 20231222
  Receipt Date: 20231228
  Transmission Date: 20240110
  Serious: Yes (Other)
  Sender: FDA-Public Use
  Company Number: DE-CELLTRION INC.-2023DE024277

PATIENT

DRUGS (1)
  1. INFLIXIMAB [Suspect]
     Active Substance: INFLIXIMAB
     Indication: Crohn^s disease
     Dosage: HAS BEEN RECEIVING REMSIMA FOR 1/2 YEAR WITH A VERY GOOD RESPONSE AND IS IN REMISSION
     Route: 042

REACTIONS (1)
  - Visual acuity reduced [Not Recovered/Not Resolved]
